FAERS Safety Report 7659729-4 (Version None)
Quarter: 2011Q3

REPORT INFORMATION
  Report Type: 
  Country: None (occurrence: None)
  Receive Date: 20110805
  Receipt Date: 20100830
  Transmission Date: 20111222
  Serious: No
  Sender: FDA-Public Use
  Company Number: US-ABBOTT-10P-163-0668746-00

PATIENT
  Age: 47 Year
  Sex: Male

DRUGS (1)
  1. DEPAKOTE ER [Suspect]
     Indication: PRODUCT USED FOR UNKNOWN INDICATION
     Route: 048

REACTIONS (9)
  - TOXICITY TO VARIOUS AGENTS [None]
  - WRONG DRUG ADMINISTERED [None]
  - DYSGEUSIA [None]
  - DIZZINESS [None]
  - FATIGUE [None]
  - NON-CARDIAC CHEST PAIN [None]
  - WRONG TECHNIQUE IN DRUG USAGE PROCESS [None]
  - NAUSEA [None]
  - PYREXIA [None]
